FAERS Safety Report 9905982 (Version 1)
Quarter: 2013Q2

REPORT INFORMATION
  Report Type: Spontaneous
  Country: US (occurrence: None)
  Receive Date: 20130305
  Receipt Date: 20130305
  Transmission Date: 20140414
  Serious: Yes (Hospitalization)
  Sender: FDA-Public Use
  Company Number: 163-21880-12041823

PATIENT
  Age: 78 Year
  Sex: Male

DRUGS (5)
  1. REVLIMID (LENALIDOMIDE) [Suspect]
     Indication: PLASMA CELL MYELOMA
     Route: 048
     Dates: start: 201112, end: 201201
  2. DEXAMETHASONE [Concomitant]
  3. METOPROLOL [Concomitant]
  4. ASA (ACETYLSALICYLIC ACID) [Concomitant]
  5. ATORVASTATIN [Concomitant]

REACTIONS (1)
  - Pancytopenia [None]
